FAERS Safety Report 12210900 (Version 2)
Quarter: 2016Q3

REPORT INFORMATION
  Report Type: Report from Study
  Country: US (occurrence: US)
  Receive Date: 20160325
  Receipt Date: 20160831
  Transmission Date: 20161109
  Serious: Yes (Hospitalization)
  Sender: FDA-Public Use
  Company Number: US-ACTELION-A-NJ2016-133211

PATIENT
  Age: 51 Year
  Sex: Female

DRUGS (11)
  1. ADCIRCA [Concomitant]
     Active Substance: TADALAFIL
  2. BENZONATATE. [Concomitant]
     Active Substance: BENZONATATE
  3. ATORVASTATIN [Concomitant]
     Active Substance: ATORVASTATIN
  4. RISPERDAL [Concomitant]
     Active Substance: RISPERIDONE
  5. PRAVASTATIN. [Concomitant]
     Active Substance: PRAVASTATIN
  6. OPSUMIT [Suspect]
     Active Substance: MACITENTAN
     Indication: PRODUCT USED FOR UNKNOWN INDICATION
     Dosage: 10 MG, QD
     Route: 048
     Dates: start: 20160210
  7. KLOR-CON [Concomitant]
     Active Substance: POTASSIUM CHLORIDE
  8. SINGULAIR [Concomitant]
     Active Substance: MONTELUKAST SODIUM
  9. FUROSEMIDE. [Concomitant]
     Active Substance: FUROSEMIDE
  10. TRAMADOL. [Concomitant]
     Active Substance: TRAMADOL
  11. CARVEDILOL. [Concomitant]
     Active Substance: CARVEDILOL

REACTIONS (3)
  - Cardiac failure congestive [Unknown]
  - Pulmonary oedema [Unknown]
  - Chronic obstructive pulmonary disease [Unknown]
